FAERS Safety Report 4554427-8 (Version None)
Quarter: 2004Q4

REPORT INFORMATION
  Report Type: 
  Country: None (occurrence: None)
  Receive Date: 20041222
  Receipt Date: 20041202
  Transmission Date: 20050328
  Serious: Yes (Hospitalization)
  Sender: FDA-Public Use
  Company Number: 388244

PATIENT
  Age: 54 Year
  Sex: Female

DRUGS (8)
  1. COPEGUS [Suspect]
     Indication: HEPATITIS C
     Dosage: 1000 MG DAILY ORAL
     Route: 048
     Dates: start: 20040303
  2. PEG-INTRON [Suspect]
     Indication: HEPATITIS C
     Dosage: 120 MG 1 PER WEEK SUBCUTANEOUS
     Route: 058
     Dates: start: 20040303
  3. DURAGESIC [Suspect]
     Indication: PAIN
     Dosage: 50 MCG TRANSDERMAL
     Route: 062
     Dates: end: 20040615
  4. OMEPRAZOLE [Suspect]
     Indication: GASTROOESOPHAGEAL REFLUX DISEASE
     Dosage: 20 MG ORAL
     Route: 048
     Dates: end: 20040615
  5. CLONIDINE [Concomitant]
  6. COLACE (DOCUSATE SODIUM) [Concomitant]
  7. ACETAMINOPHEN/OXYCODONE (ACETAMINOPHEN/OXYCODONE HYDROCHLORIDE) [Concomitant]
  8. PAROXETINE HYDROCHLORIDE (PAROXETINE) [Concomitant]

REACTIONS (2)
  - HALLUCINATION, VISUAL [None]
  - OVERDOSE [None]
